FAERS Safety Report 4836213-4 (Version None)
Quarter: 2005Q4

REPORT INFORMATION
  Report Type: 
  Country: None (occurrence: None)
  Receive Date: 20051123
  Receipt Date: 20051116
  Transmission Date: 20060501
  Serious: Yes (Hospitalization)
  Sender: FDA-Public Use
  Company Number: ES-JNJFOC-20051104754

PATIENT
  Age: 3 Year
  Sex: Male

DRUGS (6)
  1. ITRACONAZOLE [Suspect]
     Indication: ANTIFUNGAL PROPHYLAXIS
  2. VINCRISTINE [Interacting]
     Dosage: TWO DOSES WAS OMITTED TO ALLOW RECOVERY OF HEPATIC CYTOCHROME P-450.
  3. PREDNISONE [Concomitant]
  4. DAUNORUBICIN [Concomitant]
  5. ASPARAGINASE [Concomitant]
  6. INTRATHECAL CHEMOTHERAPY [Concomitant]

REACTIONS (2)
  - DRUG INTERACTION [None]
  - NEUROTOXICITY [None]
